FAERS Safety Report 20963603 (Version 1)
Quarter: 2022Q2

REPORT INFORMATION
  Report Type: Spontaneous
  Country: CN (occurrence: CN)
  Receive Date: 20220615
  Receipt Date: 20220615
  Transmission Date: 20220721
  Serious: Yes (Hospitalization)
  Sender: FDA-Public Use
  Company Number: CN-PFIZER INC-PV202200000286

PATIENT
  Age: 13 Year
  Sex: Male
  Weight: 47 kg

DRUGS (5)
  1. CYTARABINE [Suspect]
     Active Substance: CYTARABINE
     Indication: Neoplasm malignant
     Dosage: 3000 MG, 2X/DAY (DILUTING IN 5% GLUCOSE INJECTION 250 ML, TOTALLY 4 TIMES WAS ADMINISTRATED)
     Route: 041
     Dates: start: 20220507, end: 20220509
  2. CYTARABINE [Suspect]
     Active Substance: CYTARABINE
     Dosage: 36 MG (AS REPORTED)
     Route: 037
     Dates: start: 20220511, end: 20220511
  3. METHOTREXATE [Suspect]
     Active Substance: METHOTREXATE
     Indication: Neoplasm malignant
     Dosage: 12.5 MG, 1X/DAY
     Route: 037
     Dates: start: 20220511, end: 20220511
  4. ETOPOSIDE [Suspect]
     Active Substance: ETOPOSIDE
     Indication: Neoplasm malignant
     Dosage: 150 MG, 1X/DAY (100MG IN 0.9% NACL FOR 3HRS FOLLOWED BY 50MG IN 0.9% NACL FOR 2HRS, TOTALLY 150MG)
     Route: 041
     Dates: start: 20220509, end: 20220509
  5. ETOPOSIDE [Suspect]
     Active Substance: ETOPOSIDE
     Dosage: 150 MG, 2X/DAY (100MG IN 0.9% NACL FOR 3HRS FOLLOWED BY 50MG IN 0.9% NACL FOR 2HRS, TOTALLY 150MG)
     Route: 041
     Dates: start: 20220510, end: 20220511

REACTIONS (3)
  - Myelosuppression [Recovering/Resolving]
  - Infection [Recovering/Resolving]
  - Upper respiratory tract infection [Recovering/Resolving]

NARRATIVE: CASE EVENT DATE: 20220522
